FAERS Safety Report 8301401-1 (Version None)
Quarter: 2012Q2

REPORT INFORMATION
  Report Type: 
  Country: None (occurrence: None)
  Receive Date: 20120420
  Receipt Date: 20120411
  Transmission Date: 20120825
  Serious: Yes (Other)
  Sender: FDA-Public Use
  Company Number: CH-ASTRAZENECA-2012SE24301

PATIENT
  Age: 64 Year
  Sex: Male

DRUGS (7)
  1. PEGASYS [Suspect]
     Route: 058
     Dates: start: 20110601
  2. NORVASC [Suspect]
     Route: 065
  3. CYCLOSPORINE [Suspect]
     Route: 048
     Dates: start: 20070101
  4. NEXIUM [Suspect]
     Route: 048
  5. CALCIMAGON D3 [Suspect]
     Route: 048
  6. RECORMON [Suspect]
     Route: 058
     Dates: start: 20110101
  7. COPEGUS [Suspect]
     Route: 048
     Dates: start: 20110601

REACTIONS (1)
  - SUDDEN HEARING LOSS [None]
